FAERS Safety Report 7699562-0 (Version None)
Quarter: 2011Q3

REPORT INFORMATION
  Report Type: 
  Country: None (occurrence: None)
  Receive Date: 20110822
  Receipt Date: 20110817
  Transmission Date: 20111222
  Serious: Yes (Hospitalization, Other)
  Sender: FDA-Public Use
  Company Number: US-BRISTOL-MYERS SQUIBB COMPANY-15948748

PATIENT
  Age: 52 Year
  Sex: Male
  Weight: 102 kg

DRUGS (6)
  1. DEXAMETHASONE [Suspect]
  2. CEENU [Suspect]
     Indication: GLIOBLASTOMA
     Dosage: 270MG Q6W
     Route: 048
     Dates: start: 20110701
  3. AVASTIN [Suspect]
     Dosage: INFUSION
  4. ONDANSETRON [Suspect]
     Indication: NAUSEA
     Dosage: ONDANSETRON ODT
  5. PROTONIX [Suspect]
  6. AMLODIPINE [Suspect]
     Indication: BLOOD PRESSURE

REACTIONS (2)
  - PLATELET COUNT DECREASED [None]
  - CONVULSION [None]
